FAERS Safety Report 7771462-7 (Version None)
Quarter: 2011Q3

REPORT INFORMATION
  Report Type: 
  Country: None (occurrence: None)
  Receive Date: 20110922
  Receipt Date: 20110419
  Transmission Date: 20111222
  Serious: No
  Sender: FDA-Public Use
  Company Number: US-ASTRAZENECA-2011SE07193

PATIENT
  Age: 769 Month
  Sex: Female
  Weight: 57.2 kg

DRUGS (12)
  1. SEROQUEL [Suspect]
     Route: 048
     Dates: start: 20110108, end: 20110124
  2. DABAPENTIN [Concomitant]
     Route: 048
  3. ANXIETY MED [Concomitant]
  4. SEROQUEL [Suspect]
     Route: 048
     Dates: start: 20110108, end: 20110124
  5. BUPRIPRION [Concomitant]
     Indication: DEPRESSION
     Route: 048
  6. XANAX [Concomitant]
  7. TRAMADOL HCL [Concomitant]
     Dosage: FREQUENCY DAILY
     Route: 048
  8. HYPERTENSION MEDS [Concomitant]
  9. SEROQUEL [Suspect]
     Indication: BIPOLAR DISORDER
     Route: 048
     Dates: start: 20110101, end: 20110101
  10. BENZONATE [Concomitant]
     Indication: COUGH
     Route: 048
  11. SEROQUEL [Suspect]
     Indication: ANXIETY
     Route: 048
     Dates: start: 20110101, end: 20110101
  12. LISINOPRIL/HTZ [Concomitant]
     Indication: HYPERTENSION
     Dosage: DOSE 20/12.5 FREQUENCY DAILY
     Route: 048

REACTIONS (5)
  - ANXIETY [None]
  - MUSCLE SPASMS [None]
  - TACHYPHRENIA [None]
  - PANIC ATTACK [None]
  - DRUG INEFFECTIVE [None]
